FAERS Safety Report 23501780 (Version 1)
Quarter: 2024Q1

REPORT INFORMATION
  Report Type: Spontaneous
  Country: US (occurrence: US)
  Receive Date: 20240208
  Receipt Date: 20240208
  Transmission Date: 20240410
  Serious: No
  Sender: FDA-Public Use
  Company Number: US-ANIPHARMA-2023-US-036616

PATIENT
  Sex: Female

DRUGS (1)
  1. CORTICOTROPIN [Suspect]
     Active Substance: CORTICOTROPIN
     Indication: Gout
     Dosage: 40 UNITS TWICE A WEEK INTRAMUSCULAR
     Route: 030
     Dates: start: 202308, end: 202308

REACTIONS (1)
  - Blood glucose increased [Recovered/Resolved]
